FAERS Safety Report 25088223 (Version 1)
Quarter: 2025Q1

REPORT INFORMATION
  Report Type: Spontaneous
  Country: GB (occurrence: GB)
  Receive Date: 20250318
  Receipt Date: 20250318
  Transmission Date: 20250409
  Serious: Yes (Death, Other)
  Sender: MYLAN
  Company Number: GB-MHRA-TPP10858743C4496552YC1739526754839

PATIENT
  Age: 88 Year
  Sex: Female
  Weight: 79 kg

DRUGS (100)
  1. ATORVASTATIN [Suspect]
     Active Substance: ATORVASTATIN
     Indication: Ill-defined disorder
     Dosage: 80 MILLIGRAM, QD
     Dates: start: 20241003, end: 20241203
  2. ATORVASTATIN [Suspect]
     Active Substance: ATORVASTATIN
     Dosage: 80 MILLIGRAM, QD
     Route: 065
     Dates: start: 20241003, end: 20241203
  3. ATORVASTATIN [Suspect]
     Active Substance: ATORVASTATIN
     Dosage: 80 MILLIGRAM, QD
     Route: 065
     Dates: start: 20241003, end: 20241203
  4. ATORVASTATIN [Suspect]
     Active Substance: ATORVASTATIN
     Dosage: 80 MILLIGRAM, QD
     Dates: start: 20241003, end: 20241203
  5. METOCLOPRAMIDE [Concomitant]
     Active Substance: METOCLOPRAMIDE
     Indication: Ill-defined disorder
     Dosage: 10 MILLIGRAM, Q8H (10MG VIA S/C INJECTION 8 HOURLY)
     Dates: start: 20250205, end: 20250212
  6. METOCLOPRAMIDE [Concomitant]
     Active Substance: METOCLOPRAMIDE
     Dosage: 10 MILLIGRAM, Q8H (10MG VIA S/C INJECTION 8 HOURLY)
     Route: 058
     Dates: start: 20250205, end: 20250212
  7. METOCLOPRAMIDE [Concomitant]
     Active Substance: METOCLOPRAMIDE
     Dosage: 10 MILLIGRAM, Q8H (10MG VIA S/C INJECTION 8 HOURLY)
     Route: 058
     Dates: start: 20250205, end: 20250212
  8. METOCLOPRAMIDE [Concomitant]
     Active Substance: METOCLOPRAMIDE
     Dosage: 10 MILLIGRAM, Q8H (10MG VIA S/C INJECTION 8 HOURLY)
     Dates: start: 20250205, end: 20250212
  9. MIDAZOLAM [Concomitant]
     Active Substance: MIDAZOLAM
     Indication: Ill-defined disorder
     Dates: start: 20250213, end: 20250214
  10. MIDAZOLAM [Concomitant]
     Active Substance: MIDAZOLAM
     Route: 058
     Dates: start: 20250213, end: 20250214
  11. MIDAZOLAM [Concomitant]
     Active Substance: MIDAZOLAM
     Route: 058
     Dates: start: 20250213, end: 20250214
  12. MIDAZOLAM [Concomitant]
     Active Substance: MIDAZOLAM
     Dates: start: 20250213, end: 20250214
  13. OXYCODONE HYDROCHLORIDE [Concomitant]
     Active Substance: OXYCODONE HYDROCHLORIDE
     Indication: Ill-defined disorder
  14. OXYCODONE HYDROCHLORIDE [Concomitant]
     Active Substance: OXYCODONE HYDROCHLORIDE
     Route: 058
  15. OXYCODONE HYDROCHLORIDE [Concomitant]
     Active Substance: OXYCODONE HYDROCHLORIDE
     Route: 058
  16. OXYCODONE HYDROCHLORIDE [Concomitant]
     Active Substance: OXYCODONE HYDROCHLORIDE
  17. WATER [Concomitant]
     Active Substance: WATER
     Indication: Ill-defined disorder
     Dates: start: 20250205, end: 20250210
  18. WATER [Concomitant]
     Active Substance: WATER
     Route: 065
     Dates: start: 20250205, end: 20250210
  19. WATER [Concomitant]
     Active Substance: WATER
     Route: 065
     Dates: start: 20250205, end: 20250210
  20. WATER [Concomitant]
     Active Substance: WATER
     Dates: start: 20250205, end: 20250210
  21. BIOTENE NOS [Concomitant]
     Active Substance: UNSPECIFIED INGREDIENT
     Indication: Ill-defined disorder
  22. BIOTENE NOS [Concomitant]
     Active Substance: UNSPECIFIED INGREDIENT
     Indication: Dry mouth
     Route: 065
  23. BIOTENE NOS [Concomitant]
     Active Substance: UNSPECIFIED INGREDIENT
     Route: 065
  24. BIOTENE NOS [Concomitant]
     Active Substance: UNSPECIFIED INGREDIENT
  25. ASPIRIN [Concomitant]
     Active Substance: ASPIRIN
     Indication: Ill-defined disorder
     Dosage: 1 DOSAGE FORM, QD (TAKE ONE TABLET EACH DAY)
     Dates: start: 20240924, end: 20241213
  26. ASPIRIN [Concomitant]
     Active Substance: ASPIRIN
     Dosage: 1 DOSAGE FORM, QD (TAKE ONE TABLET EACH DAY)
     Route: 065
     Dates: start: 20240924, end: 20241213
  27. ASPIRIN [Concomitant]
     Active Substance: ASPIRIN
     Dosage: 1 DOSAGE FORM, QD (TAKE ONE TABLET EACH DAY)
     Route: 065
     Dates: start: 20240924, end: 20241213
  28. ASPIRIN [Concomitant]
     Active Substance: ASPIRIN
     Dosage: 1 DOSAGE FORM, QD (TAKE ONE TABLET EACH DAY)
     Dates: start: 20240924, end: 20241213
  29. BECLOMETHASONE DIPROPIONATE [Concomitant]
     Active Substance: BECLOMETHASONE DIPROPIONATE
     Indication: Ill-defined disorder
     Dosage: 2 DOSAGE FORM, BID (TWO PUFFS TWICE DAILY)
     Dates: start: 20240924
  30. BECLOMETHASONE DIPROPIONATE [Concomitant]
     Active Substance: BECLOMETHASONE DIPROPIONATE
     Dosage: 2 DOSAGE FORM, BID (TWO PUFFS TWICE DAILY)
     Route: 065
     Dates: start: 20240924
  31. BECLOMETHASONE DIPROPIONATE [Concomitant]
     Active Substance: BECLOMETHASONE DIPROPIONATE
     Dosage: 2 DOSAGE FORM, BID (TWO PUFFS TWICE DAILY)
     Route: 065
     Dates: start: 20240924
  32. BECLOMETHASONE DIPROPIONATE [Concomitant]
     Active Substance: BECLOMETHASONE DIPROPIONATE
     Dosage: 2 DOSAGE FORM, BID (TWO PUFFS TWICE DAILY)
     Dates: start: 20240924
  33. TEMAZEPAM [Concomitant]
     Active Substance: TEMAZEPAM
     Indication: Ill-defined disorder
     Dosage: 1 DOSAGE FORM, PM (TAKE ONE AT NIGHT)
     Dates: start: 20240924, end: 20241220
  34. TEMAZEPAM [Concomitant]
     Active Substance: TEMAZEPAM
     Dosage: 1 DOSAGE FORM, PM (TAKE ONE AT NIGHT)
     Route: 065
     Dates: start: 20240924, end: 20241220
  35. TEMAZEPAM [Concomitant]
     Active Substance: TEMAZEPAM
     Dosage: 1 DOSAGE FORM, PM (TAKE ONE AT NIGHT)
     Route: 065
     Dates: start: 20240924, end: 20241220
  36. TEMAZEPAM [Concomitant]
     Active Substance: TEMAZEPAM
     Dosage: 1 DOSAGE FORM, PM (TAKE ONE AT NIGHT)
     Dates: start: 20240924, end: 20241220
  37. DILTIAZEM HYDROCHLORIDE [Concomitant]
     Active Substance: DILTIAZEM HYDROCHLORIDE
     Indication: Ill-defined disorder
     Dosage: 1 DOSAGE FORM, BID (TAKE ONE TABLET TWICE A DAY)
     Dates: start: 20240924, end: 20241220
  38. DILTIAZEM HYDROCHLORIDE [Concomitant]
     Active Substance: DILTIAZEM HYDROCHLORIDE
     Dosage: 1 DOSAGE FORM, BID (TAKE ONE TABLET TWICE A DAY)
     Route: 065
     Dates: start: 20240924, end: 20241220
  39. DILTIAZEM HYDROCHLORIDE [Concomitant]
     Active Substance: DILTIAZEM HYDROCHLORIDE
     Dosage: 1 DOSAGE FORM, BID (TAKE ONE TABLET TWICE A DAY)
     Route: 065
     Dates: start: 20240924, end: 20241220
  40. DILTIAZEM HYDROCHLORIDE [Concomitant]
     Active Substance: DILTIAZEM HYDROCHLORIDE
     Dosage: 1 DOSAGE FORM, BID (TAKE ONE TABLET TWICE A DAY)
     Dates: start: 20240924, end: 20241220
  41. LOSARTAN [Concomitant]
     Active Substance: LOSARTAN
     Indication: Ill-defined disorder
     Dosage: 25 MILLIGRAM, QD
     Dates: start: 20241003, end: 20241203
  42. LOSARTAN [Concomitant]
     Active Substance: LOSARTAN
     Dosage: 25 MILLIGRAM, QD
     Route: 065
     Dates: start: 20241003, end: 20241203
  43. LOSARTAN [Concomitant]
     Active Substance: LOSARTAN
     Dosage: 25 MILLIGRAM, QD
     Route: 065
     Dates: start: 20241003, end: 20241203
  44. LOSARTAN [Concomitant]
     Active Substance: LOSARTAN
     Dosage: 25 MILLIGRAM, QD
     Dates: start: 20241003, end: 20241203
  45. POTASSIUM BICARBONATE\SODIUM ALGINATE [Concomitant]
     Active Substance: POTASSIUM BICARBONATE\SODIUM ALGINATE
     Indication: Ill-defined disorder
     Dates: start: 20250123, end: 20250213
  46. POTASSIUM BICARBONATE\SODIUM ALGINATE [Concomitant]
     Active Substance: POTASSIUM BICARBONATE\SODIUM ALGINATE
     Route: 065
     Dates: start: 20250123, end: 20250213
  47. POTASSIUM BICARBONATE\SODIUM ALGINATE [Concomitant]
     Active Substance: POTASSIUM BICARBONATE\SODIUM ALGINATE
     Route: 065
     Dates: start: 20250123, end: 20250213
  48. POTASSIUM BICARBONATE\SODIUM ALGINATE [Concomitant]
     Active Substance: POTASSIUM BICARBONATE\SODIUM ALGINATE
     Dates: start: 20250123, end: 20250213
  49. ISOSORBIDE MONONITRATE [Concomitant]
     Active Substance: ISOSORBIDE MONONITRATE
     Indication: Ill-defined disorder
     Dosage: 1 DOSAGE FORM, BID (TAKE ONE TWICE DAILY (APPROXIMATELY 8AM AND 2PM)
     Dates: start: 20241129, end: 20241227
  50. ISOSORBIDE MONONITRATE [Concomitant]
     Active Substance: ISOSORBIDE MONONITRATE
     Dosage: 1 DOSAGE FORM, BID (TAKE ONE TWICE DAILY (APPROXIMATELY 8AM AND 2PM)
     Route: 065
     Dates: start: 20241129, end: 20241227
  51. ISOSORBIDE MONONITRATE [Concomitant]
     Active Substance: ISOSORBIDE MONONITRATE
     Dosage: 1 DOSAGE FORM, BID (TAKE ONE TWICE DAILY (APPROXIMATELY 8AM AND 2PM)
     Route: 065
     Dates: start: 20241129, end: 20241227
  52. ISOSORBIDE MONONITRATE [Concomitant]
     Active Substance: ISOSORBIDE MONONITRATE
     Dosage: 1 DOSAGE FORM, BID (TAKE ONE TWICE DAILY (APPROXIMATELY 8AM AND 2PM)
     Dates: start: 20241129, end: 20241227
  53. OMEPRAZOLE [Concomitant]
     Active Substance: OMEPRAZOLE
     Indication: Ill-defined disorder
     Dosage: 1 DOSAGE FORM, QD (1 CAPSULE EVERY DAY BEFORE BREAKFAST)
     Dates: start: 20240924
  54. OMEPRAZOLE [Concomitant]
     Active Substance: OMEPRAZOLE
     Dosage: 1 DOSAGE FORM, QD (1 CAPSULE EVERY DAY BEFORE BREAKFAST)
     Route: 065
     Dates: start: 20240924
  55. OMEPRAZOLE [Concomitant]
     Active Substance: OMEPRAZOLE
     Dosage: 1 DOSAGE FORM, QD (1 CAPSULE EVERY DAY BEFORE BREAKFAST)
     Route: 065
     Dates: start: 20240924
  56. OMEPRAZOLE [Concomitant]
     Active Substance: OMEPRAZOLE
     Dosage: 1 DOSAGE FORM, QD (1 CAPSULE EVERY DAY BEFORE BREAKFAST)
     Dates: start: 20240924
  57. NITROGLYCERIN [Concomitant]
     Active Substance: NITROGLYCERIN
     Indication: Ill-defined disorder
     Dates: start: 20241129, end: 20241227
  58. NITROGLYCERIN [Concomitant]
     Active Substance: NITROGLYCERIN
     Route: 065
     Dates: start: 20241129, end: 20241227
  59. NITROGLYCERIN [Concomitant]
     Active Substance: NITROGLYCERIN
     Route: 065
     Dates: start: 20241129, end: 20241227
  60. NITROGLYCERIN [Concomitant]
     Active Substance: NITROGLYCERIN
     Dates: start: 20241129, end: 20241227
  61. METHYLPREDNISOLONE ACETATE [Concomitant]
     Active Substance: METHYLPREDNISOLONE ACETATE
     Indication: Ill-defined disorder
     Dates: start: 20241206, end: 20241207
  62. METHYLPREDNISOLONE ACETATE [Concomitant]
     Active Substance: METHYLPREDNISOLONE ACETATE
     Route: 065
     Dates: start: 20241206, end: 20241207
  63. METHYLPREDNISOLONE ACETATE [Concomitant]
     Active Substance: METHYLPREDNISOLONE ACETATE
     Route: 065
     Dates: start: 20241206, end: 20241207
  64. METHYLPREDNISOLONE ACETATE [Concomitant]
     Active Substance: METHYLPREDNISOLONE ACETATE
     Dates: start: 20241206, end: 20241207
  65. CLOTRIMAZOLE [Concomitant]
     Active Substance: CLOTRIMAZOLE
     Indication: Ill-defined disorder
     Dates: start: 20250123, end: 20250128
  66. CLOTRIMAZOLE [Concomitant]
     Active Substance: CLOTRIMAZOLE
     Route: 065
     Dates: start: 20250123, end: 20250128
  67. CLOTRIMAZOLE [Concomitant]
     Active Substance: CLOTRIMAZOLE
     Route: 065
     Dates: start: 20250123, end: 20250128
  68. CLOTRIMAZOLE [Concomitant]
     Active Substance: CLOTRIMAZOLE
     Dates: start: 20250123, end: 20250128
  69. CHLORPHENIRAMINE MALEATE [Concomitant]
     Active Substance: CHLORPHENIRAMINE MALEATE
     Indication: Ill-defined disorder
     Dates: start: 20250123, end: 20250128
  70. CHLORPHENIRAMINE MALEATE [Concomitant]
     Active Substance: CHLORPHENIRAMINE MALEATE
     Route: 065
     Dates: start: 20250123, end: 20250128
  71. CHLORPHENIRAMINE MALEATE [Concomitant]
     Active Substance: CHLORPHENIRAMINE MALEATE
     Route: 065
     Dates: start: 20250123, end: 20250128
  72. CHLORPHENIRAMINE MALEATE [Concomitant]
     Active Substance: CHLORPHENIRAMINE MALEATE
     Dates: start: 20250123, end: 20250128
  73. CYCLIZINE [Concomitant]
     Active Substance: CYCLIZINE
     Indication: Ill-defined disorder
     Dates: start: 20250123, end: 20250128
  74. CYCLIZINE [Concomitant]
     Active Substance: CYCLIZINE
     Route: 065
     Dates: start: 20250123, end: 20250128
  75. CYCLIZINE [Concomitant]
     Active Substance: CYCLIZINE
     Route: 065
     Dates: start: 20250123, end: 20250128
  76. CYCLIZINE [Concomitant]
     Active Substance: CYCLIZINE
     Dates: start: 20250123, end: 20250128
  77. SODIUM CHLORIDE [Concomitant]
     Active Substance: SODIUM CHLORIDE
     Indication: Ill-defined disorder
     Dates: start: 20250123, end: 20250128
  78. SODIUM CHLORIDE [Concomitant]
     Active Substance: SODIUM CHLORIDE
     Route: 065
     Dates: start: 20250123, end: 20250128
  79. SODIUM CHLORIDE [Concomitant]
     Active Substance: SODIUM CHLORIDE
     Route: 065
     Dates: start: 20250123, end: 20250128
  80. SODIUM CHLORIDE [Concomitant]
     Active Substance: SODIUM CHLORIDE
     Dates: start: 20250123, end: 20250128
  81. ELECTROLYTES NOS [Concomitant]
     Active Substance: ELECTROLYTES NOS
     Indication: Ill-defined disorder
     Dates: start: 20250125, end: 20250125
  82. ELECTROLYTES NOS [Concomitant]
     Active Substance: ELECTROLYTES NOS
     Route: 065
     Dates: start: 20250125, end: 20250125
  83. ELECTROLYTES NOS [Concomitant]
     Active Substance: ELECTROLYTES NOS
     Route: 065
     Dates: start: 20250125, end: 20250125
  84. ELECTROLYTES NOS [Concomitant]
     Active Substance: ELECTROLYTES NOS
     Dates: start: 20250125, end: 20250125
  85. TINZAPARIN [Concomitant]
     Active Substance: TINZAPARIN
     Indication: Ill-defined disorder
     Dates: start: 20250128, end: 20250128
  86. TINZAPARIN [Concomitant]
     Active Substance: TINZAPARIN
     Route: 065
     Dates: start: 20250128, end: 20250128
  87. TINZAPARIN [Concomitant]
     Active Substance: TINZAPARIN
     Route: 065
     Dates: start: 20250128, end: 20250128
  88. TINZAPARIN [Concomitant]
     Active Substance: TINZAPARIN
     Dates: start: 20250128, end: 20250128
  89. FUROSEMIDE [Concomitant]
     Active Substance: FUROSEMIDE
     Indication: Ill-defined disorder
     Dosage: 1 DOSAGE FORM, AM (TAKE ONE TABLET EACH MORNING)
     Dates: start: 20250129
  90. FUROSEMIDE [Concomitant]
     Active Substance: FUROSEMIDE
     Dosage: 1 DOSAGE FORM, AM (TAKE ONE TABLET EACH MORNING)
     Route: 065
     Dates: start: 20250129
  91. FUROSEMIDE [Concomitant]
     Active Substance: FUROSEMIDE
     Dosage: 1 DOSAGE FORM, AM (TAKE ONE TABLET EACH MORNING)
     Route: 065
     Dates: start: 20250129
  92. FUROSEMIDE [Concomitant]
     Active Substance: FUROSEMIDE
     Dosage: 1 DOSAGE FORM, AM (TAKE ONE TABLET EACH MORNING)
     Dates: start: 20250129
  93. BUTYLSCOPOLAMINE BROMIDE [Concomitant]
     Active Substance: BUTYLSCOPOLAMINE BROMIDE
     Indication: Ill-defined disorder
     Dates: start: 20250213, end: 20250214
  94. BUTYLSCOPOLAMINE BROMIDE [Concomitant]
     Active Substance: BUTYLSCOPOLAMINE BROMIDE
     Route: 065
     Dates: start: 20250213, end: 20250214
  95. BUTYLSCOPOLAMINE BROMIDE [Concomitant]
     Active Substance: BUTYLSCOPOLAMINE BROMIDE
     Route: 065
     Dates: start: 20250213, end: 20250214
  96. BUTYLSCOPOLAMINE BROMIDE [Concomitant]
     Active Substance: BUTYLSCOPOLAMINE BROMIDE
     Dates: start: 20250213, end: 20250214
  97. AMITRIPTYLINE [Concomitant]
     Active Substance: AMITRIPTYLINE
  98. AMITRIPTYLINE [Concomitant]
     Active Substance: AMITRIPTYLINE
     Route: 065
  99. AMITRIPTYLINE [Concomitant]
     Active Substance: AMITRIPTYLINE
     Route: 065
  100. AMITRIPTYLINE [Concomitant]
     Active Substance: AMITRIPTYLINE

REACTIONS (11)
  - Hepatitis [Fatal]
  - Acute kidney injury [Unknown]
  - Hepatotoxicity [Unknown]
  - Hepatic cirrhosis [Unknown]
  - Decreased appetite [Unknown]
  - Dyspnoea [Unknown]
  - Abdominal distension [Unknown]
  - Carbohydrate antigen 125 increased [Unknown]
  - Condition aggravated [Unknown]
  - Nausea [Unknown]
  - Dyspepsia [Unknown]

NARRATIVE: CASE EVENT DATE: 20241120
